FAERS Safety Report 23040717 (Version 1)
Quarter: 2023Q4

REPORT INFORMATION
  Report Type: Spontaneous
  Country: JP (occurrence: JP)
  Receive Date: 20231006
  Receipt Date: 20231006
  Transmission Date: 20240109
  Serious: Yes (Other)
  Sender: FDA-Public Use
  Company Number: JP-002147023-NVSJ2023JP010257

PATIENT
  Age: 47 Year
  Sex: Male

DRUGS (9)
  1. CLOZARIL [Suspect]
     Active Substance: CLOZAPINE
     Indication: Schizophrenia
     Dosage: 12.5 MG
     Route: 048
     Dates: start: 20230605
  2. CLOZARIL [Suspect]
     Active Substance: CLOZAPINE
     Dosage: 125 MG
     Route: 048
     Dates: start: 20230619, end: 20230621
  3. CLOZARIL [Suspect]
     Active Substance: CLOZAPINE
     Dosage: 75 MG
     Route: 048
     Dates: start: 20230612
  4. CLOZARIL [Suspect]
     Active Substance: CLOZAPINE
     Dosage: UNK
     Route: 048
     Dates: start: 20230911
  5. HALOPERIDOL [Suspect]
     Active Substance: HALOPERIDOL
     Indication: Product used for unknown indication
     Dosage: 16 MG
     Route: 065
  6. OLANZAPINE [Suspect]
     Active Substance: OLANZAPINE
     Indication: Product used for unknown indication
     Dosage: 5 MG
     Route: 065
  7. PALIPERIDONE [Suspect]
     Active Substance: PALIPERIDONE
     Indication: Product used for unknown indication
     Dosage: 12 MG
     Route: 065
  8. QUETIAPINE [Suspect]
     Active Substance: QUETIAPINE
     Indication: Product used for unknown indication
     Dosage: 400 MG
     Route: 065
  9. LITHIUM CARBONATE [Concomitant]
     Active Substance: LITHIUM CARBONATE
     Indication: Schizophrenia
     Dosage: UNK
     Route: 048

REACTIONS (10)
  - Decreased appetite [Recovered/Resolved]
  - Schizophrenia [Unknown]
  - Malaise [Unknown]
  - Pyrexia [Recovered/Resolved]
  - Gamma-glutamyltransferase increased [Unknown]
  - Leukopenia [Recovered/Resolved]
  - Drug-induced liver injury [Recovered/Resolved]
  - Neutrophil count decreased [Recovered/Resolved]
  - Infection [Unknown]
  - C-reactive protein increased [Unknown]

NARRATIVE: CASE EVENT DATE: 20230601
